FAERS Safety Report 10169793 (Version 3)
Quarter: 2014Q2

REPORT INFORMATION
  Report Type: Spontaneous
  Country: NO (occurrence: NO)
  Receive Date: 20140513
  Receipt Date: 20140606
  Transmission Date: 20141212
  Serious: Yes (Life-Threatening, Hospitalization, Other)
  Sender: FDA-Public Use
  Company Number: NO-BAYER-2014-065980

PATIENT
  Age: 69 Year
  Sex: Male

DRUGS (8)
  1. STIVARGA [Suspect]
     Dosage: UNK
     Route: 048
     Dates: start: 20140214, end: 20140224
  2. STIVARGA [Suspect]
     Dosage: UNK
     Route: 048
     Dates: start: 201404
  3. STIVARGA [Suspect]
     Dosage: UNK
     Route: 048
     Dates: start: 2014
  4. SELOZOK [Concomitant]
  5. MAGNYL [Concomitant]
  6. AMLODIPIN [Concomitant]
  7. KLEXANE [Concomitant]
  8. SIMVASTATIN [Concomitant]

REACTIONS (2)
  - Aortic aneurysm rupture [None]
  - Paraesthesia [None]
